FAERS Safety Report 6003037-4 (Version None)
Quarter: 2008Q4

REPORT INFORMATION
  Report Type: 
  Country: None (occurrence: None)
  Receive Date: 20081215
  Receipt Date: 20081203
  Transmission Date: 20090506
  Serious: Yes (Hospitalization)
  Sender: FDA-Public Use
  Company Number: JP-PFIZER INC-2008152047

PATIENT

DRUGS (3)
  1. LIPITOR [Suspect]
     Dosage: UNK
     Route: 048
  2. MEVALOTIN [Concomitant]
     Route: 048
  3. DRUG, UNSPECIFIED [Concomitant]

REACTIONS (5)
  - ARTHROPATHY [None]
  - CARDIAC FAILURE [None]
  - CHROMATURIA [None]
  - GRIP STRENGTH DECREASED [None]
  - RENAL IMPAIRMENT [None]
